FAERS Safety Report 6830533-X (Version None)
Quarter: 2010Q3

REPORT INFORMATION
  Report Type: 
  Country: None (occurrence: None)
  Receive Date: 20100712
  Receipt Date: 20100630
  Transmission Date: 20110219
  Serious: Yes (Death)
  Sender: FDA-Public Use
  Company Number: GB-RANBAXY-2010RR-34391

PATIENT
  Age: 20 Year
  Sex: Male
  Weight: 60 kg

DRUGS (2)
  1. ISOTRETINOIN [Suspect]
     Indication: ACNE
     Dosage: 45 MG, QD
     Route: 048
     Dates: start: 20100330, end: 20100505
  2. ERYTHROMYCIN [Concomitant]
     Dosage: 250 MG, BID
     Route: 048
     Dates: start: 20100330, end: 20100505

REACTIONS (1)
  - COMPLETED SUICIDE [None]
